FAERS Safety Report 6860453-6 (Version None)
Quarter: 2010Q3

REPORT INFORMATION
  Report Type: 
  Country: None (occurrence: None)
  Receive Date: 20100720
  Receipt Date: 20100709
  Transmission Date: 20110219
  Serious: Yes (Death)
  Sender: FDA-Public Use
  Company Number: CO-ROCHE-714331

PATIENT
  Sex: Female

DRUGS (2)
  1. HERCEPTIN [Suspect]
     Indication: BREAST CANCER
     Dosage: LAST INFUSION WAS ON 06 MAY 2010
     Route: 042
     Dates: start: 20091226, end: 20100506
  2. MORPHINE [Concomitant]
     Indication: PAIN
     Dosage: FREQUENCY:QD
     Route: 048

REACTIONS (1)
  - MALIGNANT NEOPLASM PROGRESSION [None]
